FAERS Safety Report 8072383-5 (Version None)
Quarter: 2012Q1

REPORT INFORMATION
  Report Type: 
  Country: None (occurrence: None)
  Receive Date: 20120126
  Receipt Date: 20120120
  Transmission Date: 20120608
  Serious: Yes (Hospitalization, Other)
  Sender: FDA-Public Use
  Company Number: US-SANOFI-AVENTIS-2012SA004035

PATIENT
  Age: 77 Year
  Sex: Male

DRUGS (3)
  1. LANTUS [Suspect]
     Indication: TYPE 2 DIABETES MELLITUS
     Dosage: DOSE:16 UNIT(S)
     Route: 058
     Dates: end: 20111201
  2. LANTUS [Suspect]
     Dosage: DOSE:16 UNIT(S)
     Route: 058
     Dates: start: 20111201
  3. SOLOSTAR [Suspect]
     Indication: TYPE 2 DIABETES MELLITUS
     Dates: start: 20111201

REACTIONS (2)
  - CORONARY ARTERY DISEASE [None]
  - POSTOPERATIVE WOUND INFECTION [None]
